FAERS Safety Report 20097487 (Version 1)
Quarter: 2021Q4

REPORT INFORMATION
  Report Type: Spontaneous
  Country: US (occurrence: None)
  Receive Date: 20211121
  Receipt Date: 20211121
  Transmission Date: 20220303
  Serious: Yes (Death)
  Sender: FDA-Public Use
  Company Number: None

PATIENT
  Age: 67 Year
  Sex: Female
  Weight: 98.2 kg

DRUGS (1)
  1. ABECMA [Suspect]
     Active Substance: IDECABTAGENE VICLEUCEL
     Indication: Plasma cell myeloma
     Dosage: FREQUENCY : DAILY;?
     Route: 042
     Dates: start: 20211013, end: 20211013

REACTIONS (5)
  - Fall [None]
  - Subdural haematoma [None]
  - Subarachnoid haemorrhage [None]
  - Unresponsive to stimuli [None]
  - Craniocerebral injury [None]

NARRATIVE: CASE EVENT DATE: 20211108
